FAERS Safety Report 5496997-1 (Version None)
Quarter: 2007Q4

REPORT INFORMATION
  Report Type: 
  Country: None (occurrence: None)
  Receive Date: 20071017
  Receipt Date: 20070719
  Transmission Date: 20080405
  Serious: Yes (Other)
  Sender: FDA-Public Use
  Company Number: 2007060079

PATIENT
  Age: 26 Year
  Sex: Female
  Weight: 49.4 kg

DRUGS (2)
  1. DEPO-SUBQ PROVERA 104 [Suspect]
     Indication: CONTRACEPTION
     Dosage: (104 MG, INJECTION), SUBCUTANEOUS, (104 MG, LAST INJECTION), SUBCUTANEOUS
     Route: 058
     Dates: start: 20070103, end: 20070103
  2. DEPO-SUBQ PROVERA 104 [Suspect]
     Indication: CONTRACEPTION
     Dosage: (104 MG, INJECTION), SUBCUTANEOUS, (104 MG, LAST INJECTION), SUBCUTANEOUS
     Route: 058
     Dates: start: 20070201, end: 20070201

REACTIONS (1)
  - INJECTION SITE NECROSIS [None]
